FAERS Safety Report 11324951 (Version 3)
Quarter: 2015Q4

REPORT INFORMATION
  Report Type: Report from Study
  Country: US (occurrence: US)
  Receive Date: 20150730
  Receipt Date: 20151113
  Transmission Date: 20160304
  Serious: Yes (Hospitalization, Other)
  Sender: FDA-Public Use
  Company Number: US-EISAI MEDICAL RESEARCH-EC-2014-000165

PATIENT
  Age: 83 Year
  Sex: Male
  Weight: 118.8 kg

DRUGS (22)
  1. CYANOCOBALAMIN. [Concomitant]
     Active Substance: CYANOCOBALAMIN
  2. FEXOFENADINE [Concomitant]
     Active Substance: FEXOFENADINE\FEXOFENADINE HYDROCHLORIDE
  3. ZINC [Concomitant]
     Active Substance: ZINC\ZINC CHLORIDE
  4. ARMODAFINIL. [Concomitant]
     Active Substance: ARMODAFINIL
  5. FOLIC ACID. [Concomitant]
     Active Substance: FOLIC ACID
  6. IBUPROFEN. [Concomitant]
     Active Substance: IBUPROFEN
  7. METFORMIN SR [Concomitant]
  8. LISINOPRIL. [Concomitant]
     Active Substance: LISINOPRIL
  9. NITROGLYCERIN. [Concomitant]
     Active Substance: NITROGLYCERIN
  10. RANITIDINE [Concomitant]
     Active Substance: RANITIDINE\RANITIDINE HYDROCHLORIDE
  11. DISULFIRAM. [Concomitant]
     Active Substance: DISULFIRAM
  12. LIDOCAINE. [Concomitant]
     Active Substance: LIDOCAINE
  13. MELOXICAM. [Concomitant]
     Active Substance: MELOXICAM
  14. PREGABALIN. [Concomitant]
     Active Substance: PREGABALIN
  15. TAMSULOSIN SR [Concomitant]
  16. ASPIRIN. [Concomitant]
     Active Substance: ASPIRIN
  17. ERGOCALCIFEROL. [Concomitant]
     Active Substance: ERGOCALCIFEROL
  18. ISOSORBIDE DINITRATE. [Concomitant]
     Active Substance: ISOSORBIDE DINITRATE
  19. METOPROLOL XL [Concomitant]
     Active Substance: METOPROLOL
  20. LORCASERIN [Suspect]
     Active Substance: LORCASERIN HYDROCHLORIDE
     Indication: WEIGHT CONTROL
     Route: 048
     Dates: start: 20140905, end: 20140907
  21. ATORVASTATIN [Concomitant]
     Active Substance: ATORVASTATIN
  22. LORCASERIN [Suspect]
     Active Substance: LORCASERIN HYDROCHLORIDE
     Route: 048
     Dates: start: 201409, end: 201409

REACTIONS (2)
  - Musculoskeletal chest pain [Recovered/Resolved]
  - Fatigue [Recovered/Resolved]

NARRATIVE: CASE EVENT DATE: 20140906
